FAERS Safety Report 19068712 (Version 1)
Quarter: 2021Q1

REPORT INFORMATION
  Report Type: Spontaneous
  Country: US (occurrence: US)
  Receive Date: 20210328
  Receipt Date: 20210328
  Transmission Date: 20210420
  Serious: No
  Sender: FDA-Public Use
  Company Number: None

PATIENT
  Age: 22 Year
  Sex: Male
  Weight: 78.75 kg

DRUGS (2)
  1. BUDESONIDE  (RHINOCORT) [Concomitant]
  2. AZELASTINE HCL NASAL SOLUTION (NASAL SPRAY), 0.15% [Suspect]
     Active Substance: AZELASTINE HYDROCHLORIDE
     Indication: RHINITIS ALLERGIC
     Dosage: ?          QUANTITY:1 SPRAY(S);?
     Route: 055

REACTIONS (4)
  - Dysgeusia [None]
  - Nasal discomfort [None]
  - Rhinorrhoea [None]
  - Application site pain [None]

NARRATIVE: CASE EVENT DATE: 20210328
